FAERS Safety Report 25802230 (Version 1)
Quarter: 2025Q3

REPORT INFORMATION
  Report Type: Spontaneous
  Country: GB (occurrence: GB)
  Receive Date: 20250915
  Receipt Date: 20250915
  Transmission Date: 20251021
  Serious: Yes (Hospitalization, Other)
  Sender: AUROBINDO
  Company Number: GB-MHRA-MIDB-876121bb-1e3d-4305-9e82-75c907b0592b

PATIENT
  Age: 88 Year
  Sex: Female

DRUGS (9)
  1. PREDNISOLONE [Suspect]
     Active Substance: PREDNISOLONE
     Indication: Product used for unknown indication
     Route: 065
  2. AMLODIPINE [Concomitant]
     Active Substance: AMLODIPINE BESYLATE
     Indication: Product used for unknown indication
     Dosage: 10 MILLIGRAM, ONCE A DAY (AMLODIPINE 10 MG TABLETS ONE TO BE TAKEN EACH DAY)
     Route: 065
  3. ATORVASTATIN [Concomitant]
     Active Substance: ATORVASTATIN
     Indication: Product used for unknown indication
     Dosage: 20 MILLIGRAM, ONCE A DAY (ATORVASTATIN 20 MG TABLETS ONE TO BE TAKEN EACH DAY AT NIGHT)
     Route: 065
  4. DOCUSATE [Concomitant]
     Active Substance: DOCUSATE
     Indication: Product used for unknown indication
     Dosage: 5 MILLILITER, TWO TIMES A DAY (DOCUSATE 50 MG / 5 ML ORAL SOLUTION SUGAR FREE TAKE TWO 5 ML SPOONFUL
     Route: 065
  5. OMEPRAZOLE [Concomitant]
     Active Substance: OMEPRAZOLE
     Indication: Product used for unknown indication
     Dosage: 1 DOSAGE FORM, ONCE A DAY (OMEPRAZOLE 40 MG GASTRO-RESISTANT CAPSULES ONE TO BE TAKEN EACH DAY)
     Route: 065
  6. POLYETHYLENE GLYCOLS [Concomitant]
     Active Substance: POLYETHYLENE GLYCOLS
     Indication: Product used for unknown indication
     Dosage: 2 DOSAGE FORM, TWO TIMES A DAY (MACROGOL COMPOUND ORAL POWDER SACHETS NPF SUGAR FREE TWO TO BE TAKEN
     Route: 065
  7. MEBEVERINE [Concomitant]
     Active Substance: MEBEVERINE
     Indication: Product used for unknown indication
     Dosage: 1 DOSAGE FORM, 3 TIMES A DAY (MEBEVERINE 135 MG TABLETS ONE TO BE TAKEN THREE TIMES A DAY TWENTY MIN
     Route: 065
  8. QUININE SULFATE [Concomitant]
     Active Substance: QUININE SULFATE
     Indication: Product used for unknown indication
     Route: 065
  9. SODIUM ALGINATE [Concomitant]
     Active Substance: SODIUM ALGINATE
     Indication: Product used for unknown indication
     Dosage: UNK UNK, 3 TIMES A DAY (SODIUM ALGINATE 500 MG / 5 ML / POTASSIUM BICARBONATE 100 MG / 5 ML ORAL SUS
     Route: 065

REACTIONS (2)
  - Drug-induced liver injury [Unknown]
  - Liver injury [Unknown]
